FAERS Safety Report 6029689-0 (Version None)
Quarter: 2009Q1

REPORT INFORMATION
  Report Type: 
  Country: None (occurrence: None)
  Receive Date: 20090107
  Receipt Date: 20090105
  Transmission Date: 20090719
  Serious: Yes (Death)
  Sender: FDA-Public Use
  Company Number: PHEH2008US11304

PATIENT
  Sex: Male

DRUGS (1)
  1. MIACALCIN [Suspect]
     Dosage: UNK, UNK
     Dates: start: 20081201

REACTIONS (2)
  - CARDIO-RESPIRATORY ARREST [None]
  - HEPATIC NEOPLASM MALIGNANT [None]
